FAERS Safety Report 8036383-3 (Version None)
Quarter: 2012Q1

REPORT INFORMATION
  Report Type: 
  Country: None (occurrence: None)
  Receive Date: 20120111
  Receipt Date: 20120109
  Transmission Date: 20120608
  Serious: Yes (Death)
  Sender: FDA-Public Use
  Company Number: PHHY2011US25221

PATIENT
  Sex: Male
  Weight: 108.84 kg

DRUGS (9)
  1. GLEEVEC [Suspect]
     Indication: GASTROINTESTINAL STROMAL TUMOUR
     Dosage: 400 MG, DAILY
     Route: 048
     Dates: start: 20110301
  2. TAMSULOSIN HYDROCHLORIDE [Concomitant]
     Dosage: 0.4 MG, DAILY
     Route: 048
  3. AMBIEN [Concomitant]
     Dosage: 5 MG, AT BED TIME
     Route: 048
  4. IRON [Concomitant]
     Dosage: 150 MG, BID
  5. PANTOPRAZOLE [Concomitant]
     Dosage: 40 MG,DAILY
     Route: 048
  6. POTASSIUM PHOSPHATES [Concomitant]
     Dosage: 150 MG, DAILY
     Route: 048
  7. AVAPRO [Concomitant]
     Dosage: 150 MG, DAILY
     Route: 048
  8. SYNTHROID [Concomitant]
     Dosage: 50 UG,DAILY
     Route: 048
  9. METOPROLOL SUCCINATE [Concomitant]
     Dosage: 50 MG,DAILY
     Route: 048

REACTIONS (7)
  - DEPRESSION [None]
  - COMPLETED SUICIDE [None]
  - WEIGHT DECREASED [None]
  - DECREASED APPETITE [None]
  - ASPHYXIA [None]
  - FATIGUE [None]
  - ANAEMIA [None]
